FAERS Safety Report 25109731 (Version 5)
Quarter: 2025Q2

REPORT INFORMATION
  Report Type: Report from Study
  Country: US (occurrence: US)
  Receive Date: 20250323
  Receipt Date: 20250523
  Transmission Date: 20250716
  Serious: No
  Sender: ACADIA PHARMACEUTICALS
  Company Number: US-ACADIA PHARMACEUTICALS INC.-ACA-2025-TRF-002857

PATIENT
  Age: 12 Year
  Sex: Female
  Weight: 22.7 kg

DRUGS (29)
  1. DAYBUE [Suspect]
     Active Substance: TROFINETIDE
     Indication: Rett syndrome
     Dosage: 30 MILLILITER, BID
     Dates: start: 20240815
  2. DAYBUE [Suspect]
     Active Substance: TROFINETIDE
     Dosage: 40 MILLILITER, BID
     Dates: start: 20250226, end: 20250305
  3. DAYBUE [Suspect]
     Active Substance: TROFINETIDE
     Dosage: 35 MILLILITER, BID (G-TUBE)
     Dates: start: 20250305, end: 20250318
  4. DAYBUE [Suspect]
     Active Substance: TROFINETIDE
     Dosage: 30 MILLILITER, BID (G-TUBE)
     Dates: start: 20250419
  5. DAYBUE [Suspect]
     Active Substance: TROFINETIDE
     Dosage: 35 MILLILITER, BID
     Dates: start: 20250426
  6. VIMPAT [Concomitant]
     Active Substance: LACOSAMIDE
     Dosage: 10 MG/ML, TAKE 5 ML BY G-TUBE 2 TIMES A DAY
  7. MYSOLINE [Concomitant]
     Active Substance: PRIMIDONE
     Dosage: TAKE 1 TABLET BY G-TUBE EVERY NIGHT AT BEDTIME
  8. RISPERDAL [Concomitant]
     Active Substance: RISPERIDONE
     Dosage: STRENGTH 1 MG/ML, TAKE 4 ML BY G-TUBE 2 TIMES A DAY
  9. VALPROATE SODIUM [Concomitant]
     Active Substance: VALPROATE SODIUM
     Route: 048
  10. VALTOCO [Concomitant]
     Active Substance: DIAZEPAM
     Route: 045
  11. FLONASE [Concomitant]
     Active Substance: FLUTICASONE PROPIONATE
     Indication: Respiratory tract infection viral
  12. PULMICORT TURBUHALER [Concomitant]
     Active Substance: BUDESONIDE
     Indication: Nasopharyngitis
  13. PULMICORT TURBUHALER [Concomitant]
     Active Substance: BUDESONIDE
     Indication: Respiratory tract infection
  14. PULMICORT TURBUHALER [Concomitant]
     Active Substance: BUDESONIDE
     Indication: Wheezing
  15. ALBUTEROL SULFATE [Concomitant]
     Active Substance: ALBUTEROL SULFATE
     Indication: Wheezing
  16. ALBUTEROL SULFATE [Concomitant]
     Active Substance: ALBUTEROL SULFATE
     Indication: Dyspnoea
  17. PROVENTIL [Concomitant]
     Active Substance: ALBUTEROL
     Indication: Cough
  18. PROVENTIL [Concomitant]
     Active Substance: ALBUTEROL
     Indication: Wheezing
  19. SODIUM CHLORIDE [Concomitant]
     Active Substance: SODIUM CHLORIDE
     Indication: Nasopharyngitis
  20. REMERON [Concomitant]
     Active Substance: MIRTAZAPINE
     Dosage: TAKE 1.5 TABLETS BY MOUTH EVERY NIGHT AT BEDTIME
     Route: 048
  21. KONVOMEP [Concomitant]
     Active Substance: OMEPRAZOLE\SODIUM BICARBONATE
     Dosage: 2-84 MG/ML SUSPENSION FOR RECONSTITUTION, TAKE 10 ML BY G-TUBE 2 TIMES A DAY
  22. REGLAN [Concomitant]
     Active Substance: METOCLOPRAMIDE HYDROCHLORIDE
     Dosage: 5 MG/5 ML SOLUTION, TAKE 4.5 ML BY G-TUBE 4 TIMES A DAY BEFORE MEALS AND AT BEDTIME
  23. D-VI-SOL [Concomitant]
     Dosage: 5 MILLILITER, QD
  24. TYLENOL [Concomitant]
     Active Substance: ACETAMINOPHEN
     Indication: Pain
  25. MOTRIN [Concomitant]
     Active Substance: IBUPROFEN
     Indication: Pain
  26. MOTRIN [Concomitant]
     Active Substance: IBUPROFEN
     Indication: Pyrexia
  27. ZANAFLEX [Concomitant]
     Active Substance: TIZANIDINE HYDROCHLORIDE
     Dosage: TAKE 1 TABLET BY G-TUBE 4 TIMES A DAY
  28. ADVIL [Concomitant]
     Active Substance: IBUPROFEN
     Indication: Pain
  29. ADVIL [Concomitant]
     Active Substance: IBUPROFEN
     Indication: Pyrexia

REACTIONS (4)
  - Nausea [Not Recovered/Not Resolved]
  - Abdominal pain upper [Not Recovered/Not Resolved]
  - Diarrhoea [Recovered/Resolved]
  - Underdose [Not Recovered/Not Resolved]

NARRATIVE: CASE EVENT DATE: 20250305
